FAERS Safety Report 11630138 (Version 3)
Quarter: 2020Q1

REPORT INFORMATION
  Report Type: Spontaneous
  Country: US (occurrence: US)
  Receive Date: 20151014
  Receipt Date: 20200128
  Transmission Date: 20200409
  Serious: Yes (Life-Threatening, Hospitalization, Other)
  Sender: FDA-Public Use
  Company Number: US-UNITED THERAPEUTICS-UNT-2015-012612

PATIENT
  Age: 56 Year
  Sex: Female
  Weight: 85.1 kg

DRUGS (40)
  1. FLOLAN [Concomitant]
     Active Substance: EPOPROSTENOL SODIUM
     Indication: PULMONARY ARTERIAL HYPERTENSION
     Dosage: UNK
     Route: 041
     Dates: start: 20151005
  2. ALBUMIN [Concomitant]
     Active Substance: ALBUMIN HUMAN
     Indication: PROPHYLAXIS
     Dosage: UNK (24 GRAM, TOTAL DAILY DOSE)
     Route: 065
     Dates: start: 20150928, end: 20150928
  3. ALBUMIN [Concomitant]
     Active Substance: ALBUMIN HUMAN
     Dosage: UNK (25 GRAM, TOTAL DAILY DOSE)
     Route: 065
     Dates: start: 20150930, end: 20150930
  4. SENSIPAR [Concomitant]
     Active Substance: CINACALCET HYDROCHLORIDE
     Indication: DIALYSIS
     Dosage: UNK (180 MG, TOTAL DAILY DOSE)
     Route: 065
     Dates: start: 2013
  5. ULTRAM [Concomitant]
     Active Substance: TRAMADOL HYDROCHLORIDE
     Indication: PAIN MANAGEMENT
     Dosage: UNK, PRN (EVERY 6 HOUR) (50 MG, TOTAL DAILY DOSE)
     Route: 065
     Dates: start: 20150925, end: 20150928
  6. COUMADIN [Concomitant]
     Active Substance: WARFARIN SODIUM
     Dosage: UNK (10 MG, TOTAL DAILY DOSE)
     Route: 065
     Dates: start: 20151004, end: 20151004
  7. REMODULIN [Suspect]
     Active Substance: TREPROSTINIL
     Dosage: UNK, CONTINUING
     Route: 041
     Dates: start: 20150922
  8. ISOVUE 300 [Concomitant]
     Active Substance: IOPAMIDOL
     Indication: CATHETERISATION CARDIAC
     Dosage: UNK (60 ML, TOTALL DAILY DOSE)
     Route: 065
     Dates: start: 20150923, end: 20150923
  9. COUMADIN [Concomitant]
     Active Substance: WARFARIN SODIUM
     Dosage: UNK (2.5 MG, TOTAL DAILY DOSE)
     Route: 065
     Dates: start: 20151005, end: 20151005
  10. SURFAK [Concomitant]
     Indication: CONSTIPATION PROPHYLAXIS
     Dosage: UNK, QOD (240 MG, TOTAL DAILY DOSE)
     Route: 065
     Dates: start: 20150922, end: 20160626
  11. HEPARIN [Concomitant]
     Active Substance: HEPARIN SODIUM
     Indication: ANTICOAGULANT THERAPY
     Dosage: UNK (18 UNITS/KG/HR, TOTAL DAILY DOSE)
     Route: 065
     Dates: start: 20150922, end: 20150923
  12. METOPROLOL. [Concomitant]
     Active Substance: METOPROLOL
     Indication: CORONARY ARTERY DISEASE
     Dosage: UNK (50 MG, TOTAL DAILY DOSE)
     Route: 065
     Dates: start: 20150809, end: 20160626
  13. PROAMATINE [Concomitant]
     Active Substance: MIDODRINE HYDROCHLORIDE
     Indication: PROPHYLAXIS
     Dosage: UNK, PRN (5 MG, TOTAL DAILY DOSE)
     Route: 065
     Dates: start: 20150928, end: 20150930
  14. COUMADIN [Concomitant]
     Active Substance: WARFARIN SODIUM
     Dosage: UNK (7.5 MG, TOTAL DAILY DOSE)
     Route: 065
     Dates: start: 20151002, end: 20151003
  15. SACCHARIN [Suspect]
     Active Substance: SACCHARIN
     Indication: MEDICATION DILUTION
     Dosage: UNK
     Route: 041
  16. PROCRIT [Concomitant]
     Active Substance: ERYTHROPOIETIN
     Dosage: UNK (10000 UNITS, TOTAL DAILY DOSE)
     Route: 065
     Dates: start: 20151002, end: 20151002
  17. HEPARIN [Concomitant]
     Active Substance: HEPARIN SODIUM
     Dosage: UNK (13 UNITS/KG/HR, TOTAL DAILY DOSE)
     Route: 065
     Dates: start: 20151001, end: 20151001
  18. HEPARIN [Concomitant]
     Active Substance: HEPARIN SODIUM
     Dosage: UNK (10 UNITS/KG/HR, TOTAL DAILY DOSE)
     Route: 065
     Dates: start: 20151001, end: 20151003
  19. REMODULIN [Suspect]
     Active Substance: TREPROSTINIL
     Indication: PULMONARY ARTERIAL HYPERTENSION
     Dosage: 0.0065 ?G/KG, CONTINUING
     Route: 041
     Dates: start: 20150929
  20. HEPARIN [Concomitant]
     Active Substance: HEPARIN SODIUM
     Dosage: UNK (17 UNITS/KG/HR, TOTAL DAILY DOSE)
     Route: 065
     Dates: start: 20150924, end: 20150924
  21. HEPARIN [Concomitant]
     Active Substance: HEPARIN SODIUM
     Dosage: UNK (11 UNITS/KG/HR, TOTAL DAILY DOSE)
     Route: 065
     Dates: start: 20150930, end: 20151001
  22. FENTANYL. [Concomitant]
     Active Substance: FENTANYL
     Indication: PAIN PROPHYLAXIS
     Dosage: UNK (100 ?G, TOTAL DAILY DOSE)
     Route: 065
     Dates: start: 20150923, end: 20150923
  23. ZOFRAN [Concomitant]
     Active Substance: ONDANSETRON HYDROCHLORIDE
     Indication: NAUSEA
     Dosage: UNK (4 MG, TOTAL DAILY DOSE)
     Route: 065
     Dates: start: 20150924, end: 20150924
  24. RENVELA [Concomitant]
     Active Substance: SEVELAMER CARBONATE
     Indication: DIALYSIS
     Dosage: UNK (1600 MG, TOTAL DAILY DOSE)
     Route: 065
     Dates: start: 20150819
  25. COUMADIN [Concomitant]
     Active Substance: WARFARIN SODIUM
     Dosage: UNK (2.5 MG, TOTAL DAILY DOSE)
     Route: 065
     Dates: start: 20150929, end: 20150930
  26. TYLENOL [Concomitant]
     Active Substance: ACETAMINOPHEN
     Indication: PAIN MANAGEMENT
     Dosage: UNK, PRN (EVERY FOUR HOUR) (650 MG, TOTAL DAILY DOSE)
     Route: 065
     Dates: start: 20150923, end: 20150925
  27. PROCRIT [Concomitant]
     Active Substance: ERYTHROPOIETIN
     Indication: CHRONIC KIDNEY DISEASE
     Dosage: UNK (10000 UNITS, TOTAL DAILY DOSE)
     Route: 065
     Dates: start: 20150925, end: 20150925
  28. HEPARIN [Concomitant]
     Active Substance: HEPARIN SODIUM
     Dosage: UNK (13 UNITS/KG/HR, TOTAL DAILY DOSE)
     Route: 065
     Dates: start: 20150926, end: 20150930
  29. HEPARIN [Concomitant]
     Active Substance: HEPARIN SODIUM
     Dosage: UNK (12 UNITS/KG/HR, TOTAL DAILY DOSE)
     Route: 065
     Dates: start: 20151004, end: 20151005
  30. LIDOCAINE. [Concomitant]
     Active Substance: LIDOCAINE
     Indication: PAIN PROPHYLAXIS
     Dosage: UNK (15 ML, TOTAL DAILY DOSE)
     Route: 065
     Dates: start: 20150923, end: 20150923
  31. COUMADIN [Concomitant]
     Active Substance: WARFARIN SODIUM
     Indication: ANTICOAGULANT THERAPY
     Dosage: UNK (2.5 MG, TOTAL DAILY DOSE)
     Route: 065
     Dates: start: 20150923, end: 20150924
  32. COUMADIN [Concomitant]
     Active Substance: WARFARIN SODIUM
     Dosage: UNK (5 MG, TOTAL DAILY DOSE)
     Route: 065
     Dates: start: 20150925, end: 20150926
  33. COUMADIN [Concomitant]
     Active Substance: WARFARIN SODIUM
     Dosage: UNK (6.5 MG, TOTAL DAILY DOSE)
     Route: 065
     Dates: start: 20150928, end: 20150928
  34. HEPARIN [Concomitant]
     Active Substance: HEPARIN SODIUM
     Dosage: UNK (15 UNITS/KG/HR, TOTAL DAILY DOSE)
     Route: 065
     Dates: start: 20150925, end: 20150925
  35. EMLA [Concomitant]
     Active Substance: LIDOCAINE\PRILOCAINE
     Indication: PAIN PROPHYLAXIS
     Dosage: UNK (1 APPLICATION, PRIOR TO DIALYSIS)
     Route: 065
     Dates: start: 20150922, end: 20151005
  36. VERSED [Concomitant]
     Active Substance: MIDAZOLAM HYDROCHLORIDE
     Indication: PAIN PROPHYLAXIS
     Dosage: UNK (3 MG, TOTAL DAILY DOSE)
     Route: 065
     Dates: start: 20150923, end: 20150923
  37. COUMADIN [Concomitant]
     Active Substance: WARFARIN SODIUM
     Dosage: UNK (5 MG, TOTAL DAILY DOSE)
     Route: 065
     Dates: start: 20151001, end: 20151001
  38. HEPARIN [Concomitant]
     Active Substance: HEPARIN SODIUM
     Dosage: UNK (20 UNITS/KG/HR, TOTAL DAILY DOSE)
     Route: 065
     Dates: start: 20150923, end: 20150924
  39. COUMADIN [Concomitant]
     Active Substance: WARFARIN SODIUM
     Dosage: UNK (7.5 MG, TOTAL DAILY DOSE)
     Route: 065
     Dates: start: 20150927, end: 20150927
  40. AMBIEN [Concomitant]
     Active Substance: ZOLPIDEM TARTRATE
     Indication: INSOMNIA
     Dosage: UNK (5 MG, TOTAL DAILY DOSE)
     Route: 065

REACTIONS (4)
  - Angioedema [Recovered/Resolved]
  - Anaphylactic reaction [Recovered/Resolved]
  - Urticaria [Recovered/Resolved]
  - Hypersensitivity [Recovered/Resolved]

NARRATIVE: CASE EVENT DATE: 20151005
